FAERS Safety Report 25612882 (Version 1)
Quarter: 2025Q3

REPORT INFORMATION
  Report Type: Report from Study
  Country: US (occurrence: US)
  Receive Date: 20250728
  Receipt Date: 20250728
  Transmission Date: 20251020
  Serious: Yes (Hospitalization, Other)
  Sender: ABBVIE
  Company Number: US-ABBVIE-6386797

PATIENT
  Age: 55 Year
  Sex: Female

DRUGS (1)
  1. SKYRIZI [Suspect]
     Active Substance: RISANKIZUMAB-RZAA
     Indication: Psoriasis
     Route: 058
     Dates: start: 20250320, end: 20250320

REACTIONS (3)
  - Mastitis [Not Recovered/Not Resolved]
  - Cellulitis [Unknown]
  - Gangrene [Unknown]

NARRATIVE: CASE EVENT DATE: 20250101
